FAERS Safety Report 9284230 (Version 1)
Quarter: 2013Q2

REPORT INFORMATION
  Report Type: Spontaneous
  Country: CZ (occurrence: CZ)
  Receive Date: 20130510
  Receipt Date: 20130510
  Transmission Date: 20140414
  Serious: Yes (Other)
  Sender: FDA-Public Use
  Company Number: CZ-ROXANE LABORATORIES, INC.-2013-RO-00703RO

PATIENT
  Age: 56 Year
  Sex: Male
  Weight: 87 kg

DRUGS (14)
  1. FUROSEMIDE [Suspect]
     Indication: HYPERTENSION
     Dosage: 40 MG
  2. AMLODIPINE [Suspect]
     Indication: HYPERTENSION
     Dosage: 10 MG
  3. MYCOPHENOLATE MOFETIL [Suspect]
     Dosage: 1000 MG
  4. PERINDOPRIL [Suspect]
     Indication: HYPERTENSION
     Dosage: 5 MG
  5. BETAXOLOL [Suspect]
     Indication: HYPERTENSION
     Dosage: 20 MG
  6. SPIRONOLACTON [Suspect]
     Indication: HYPERTENSION
  7. ACIDUM ACETYLSALICYLICUM [Suspect]
     Dosage: 100 MG
  8. LOVASTATIN [Suspect]
     Dosage: 20 NR
  9. ALLOPURINOL [Suspect]
     Dosage: 300 MG
  10. OMEPRAZOLE [Suspect]
     Dosage: 20 MG
  11. MAGNESII LACTICI [Suspect]
     Dosage: 1000 MG
  12. CALCITRIOL [Suspect]
     Dosage: 10 MG
  13. ACIDUM ALENDRONICUM [Suspect]
  14. CYCLOSPORINE A [Suspect]
     Indication: IMMUNOSUPPRESSION
     Dosage: 125 MG

REACTIONS (4)
  - Oedema peripheral [Recovered/Resolved]
  - Quality of life decreased [None]
  - Abasia [None]
  - Sexual dysfunction [None]
